FAERS Safety Report 17562025 (Version 3)
Quarter: 2020Q2

REPORT INFORMATION
  Report Type: Spontaneous
  Country: US (occurrence: US)
  Receive Date: 20200319
  Receipt Date: 20200409
  Transmission Date: 20200713
  Serious: No
  Sender: FDA-Public Use
  Company Number: US-PFIZER INC-2020117465

PATIENT
  Age: 59 Year
  Sex: Female
  Weight: 79.38 kg

DRUGS (1)
  1. DUAVEE [Suspect]
     Active Substance: BAZEDOXIFENE ACETATE\ESTROGENS, CONJUGATED
     Indication: MENOPAUSAL SYMPTOMS
     Dosage: (0.45MG/20MG), 1X/DAY
     Route: 048
     Dates: start: 2018

REACTIONS (1)
  - Irritability [Unknown]
